FAERS Safety Report 19623592 (Version 2)
Quarter: 2021Q3

REPORT INFORMATION
  Report Type: Spontaneous
  Country: CA (occurrence: CA)
  Receive Date: 20210729
  Receipt Date: 20210811
  Transmission Date: 20211014
  Serious: Yes (Life-Threatening, Hospitalization, Other)
  Sender: FDA-Public Use
  Company Number: CA-BAUSCH-BL-2021-025496

PATIENT
  Age: 10 Year
  Sex: Male

DRUGS (10)
  1. DESMOPRESSIN [Suspect]
     Active Substance: DESMOPRESSIN
     Dosage: 0.6 MG PRN (AS NEEDED) ON DAY 2, DAY 3, DAY 4 AND DAY 5.
     Route: 065
     Dates: start: 20180203, end: 20180206
  2. HYDROMORPHONE [Interacting]
     Active Substance: HYDROMORPHONE
     Indication: PAIN
     Dosage: 2 MG Q4HR (EVERY 4 HOUR) PRN (AS NEEDED)
     Route: 065
     Dates: start: 20180127, end: 20180202
  3. HYDROCORTISONE. [Concomitant]
     Active Substance: HYDROCORTISONE
     Dosage: DOUBLE MAINTENANCE FOR 2 ADDITIONAL DAYS
     Route: 065
  4. DDAVP [Suspect]
     Active Substance: DESMOPRESSIN ACETATE
     Indication: DIABETES INSIPIDUS
     Dosage: INTRANASAL
     Route: 045
     Dates: end: 201802
  5. HYDROCORTISONE. [Concomitant]
     Active Substance: HYDROCORTISONE
     Route: 048
  6. IBUPROFEN. [Interacting]
     Active Substance: IBUPROFEN
     Indication: PAIN
     Dosage: 600 MG Q6HR (EVERY 6 HOURS) PRN (AS NEEDED)
     Route: 048
     Dates: start: 20180128, end: 20180207
  7. SOMATROPIN ? INJECTION [Concomitant]
     Indication: PRODUCT USED FOR UNKNOWN INDICATION
     Dosage: GROWTH HORMONE
     Route: 058
  8. HYDROCORTISONE. [Concomitant]
     Active Substance: HYDROCORTISONE
     Indication: DIABETES INSIPIDUS
     Dosage: 6.3 MG/M2/DAY
     Route: 048
  9. DESMOPRESSIN [Suspect]
     Active Substance: DESMOPRESSIN
     Indication: DIABETES INSIPIDUS
     Route: 048
  10. HYDROMORPHONE [Interacting]
     Active Substance: HYDROMORPHONE
     Dosage: 1 MG Q4HR PRN
     Route: 065
     Dates: start: 20180127, end: 20180202

REACTIONS (5)
  - Drug interaction [Recovered/Resolved]
  - Unresponsive to stimuli [Recovered/Resolved]
  - Apnoeic attack [Recovered/Resolved]
  - Hyponatraemia [Recovered/Resolved]
  - Seizure [Recovered/Resolved]

NARRATIVE: CASE EVENT DATE: 20180202
